FAERS Safety Report 6736687-8 (Version None)
Quarter: 2010Q2

REPORT INFORMATION
  Report Type: 
  Country: None (occurrence: None)
  Receive Date: 20100521
  Receipt Date: 20100511
  Transmission Date: 20101027
  Serious: Yes (Hospitalization)
  Sender: FDA-Public Use
  Company Number: PHHY2010US30546

PATIENT
  Sex: Female

DRUGS (1)
  1. EXJADE [Suspect]
     Indication: THALASSAEMIA
     Dosage: 1500 MG, QD
     Route: 048

REACTIONS (3)
  - MYECTOMY [None]
  - OESOPHAGEAL SPASM [None]
  - OESOPHAGEAL STENOSIS [None]
